FAERS Safety Report 5048750-0 (Version None)
Quarter: 2006Q3

REPORT INFORMATION
  Report Type: 
  Country: None (occurrence: None)
  Receive Date: 20060705
  Receipt Date: 20060622
  Transmission Date: 20061208
  Serious: Yes (Life-Threatening, Other)
  Sender: FDA-Public Use
  Company Number: HQWYE346322JUN06

PATIENT
  Age: 48 Year
  Sex: Male

DRUGS (5)
  1. CONTROLOC (PANTOPRAZOLE, TABLET, DELAYED RELEASE) [Suspect]
     Indication: HELICOBACTER INFECTION
     Dosage: SEE IMAGE
     Route: 048
     Dates: start: 20060115, end: 20060125
  2. CONTROLOC (PANTOPRAZOLE, TABLET, DELAYED RELEASE) [Suspect]
     Indication: HELICOBACTER INFECTION
     Dosage: SEE IMAGE
     Route: 048
     Dates: start: 20060126, end: 20060209
  3. TOLPERIS (TOLPERISONE, ) [Suspect]
     Indication: BACK PAIN
     Dosage: 100 MG 3X PER 1 DAY, ORAL
     Route: 048
     Dates: start: 20060202, end: 20060209
  4. AMOXICILLIN [Concomitant]
  5. CLARITHROMYCIN [Concomitant]

REACTIONS (3)
  - ANAPHYLACTIC REACTION [None]
  - HAEMODYNAMIC INSTABILITY [None]
  - LOSS OF CONSCIOUSNESS [None]
